FAERS Safety Report 19313628 (Version 1)
Quarter: 2021Q2

REPORT INFORMATION
  Report Type: Spontaneous
  Country: IT (occurrence: IT)
  Receive Date: 20210527
  Receipt Date: 20210527
  Transmission Date: 20210717
  Serious: Yes (Other)
  Sender: FDA-Public Use
  Company Number: IT-PFIZER INC-2021551472

PATIENT
  Age: 29 Year
  Sex: Female

DRUGS (2)
  1. CCNU [Suspect]
     Active Substance: LOMUSTINE
     Dosage: UNK
  2. VINCRISTINE SULFATE. [Suspect]
     Active Substance: VINCRISTINE SULFATE
     Dosage: UNK

REACTIONS (2)
  - Salivary gland cancer [Recovering/Resolving]
  - Second primary malignancy [Recovering/Resolving]
